FAERS Safety Report 7427314-5 (Version None)
Quarter: 2011Q2

REPORT INFORMATION
  Report Type: 
  Country: None (occurrence: None)
  Receive Date: 20110420
  Receipt Date: 20110413
  Transmission Date: 20111010
  Serious: Yes (Hospitalization)
  Sender: FDA-Public Use
  Company Number: US-B.I. PHARMACEUTICALS,INC./RIDGEFIELD-2010-BP-14995BP

PATIENT
  Sex: Female

DRUGS (14)
  1. PREDNISONE [Concomitant]
     Indication: RENAL TRANSPLANT
     Dosage: 5 MG
  2. LOSARTAN POTASSIUM [Concomitant]
     Indication: HYPERTENSION
     Dosage: 50 MG
  3. NEORAL [Concomitant]
     Dosage: 200 MG
  4. COTRIM [Concomitant]
  5. LISINOPRIL [Concomitant]
     Indication: HYPERTENSION
     Dosage: 40 MG
  6. CYCLOSPORINE [Concomitant]
     Indication: RENAL TRANSPLANT
  7. NEXIUM [Concomitant]
     Indication: GASTROOESOPHAGEAL REFLUX DISEASE
     Dosage: 40 MG
  8. AMLODIPINE [Concomitant]
     Indication: HYPERTENSION
  9. PRADAXA [Suspect]
     Indication: ATRIAL FIBRILLATION
     Dosage: 300 MG
     Route: 048
     Dates: start: 20101208, end: 20101212
  10. LIPITOR [Concomitant]
     Indication: PROPHYLAXIS
     Dosage: 10 MG
  11. LOPRESSOR [Concomitant]
     Indication: ATRIAL FIBRILLATION
     Dosage: 150 MG
  12. CELLCEPT [Concomitant]
     Indication: RENAL TRANSPLANT
     Dosage: 1000 MG
  13. INSULIN PUMP [Concomitant]
     Indication: DIABETES MELLITUS
  14. CLONIDINE [Concomitant]
     Indication: HYPERTENSION

REACTIONS (5)
  - GINGIVAL BLEEDING [None]
  - TOOTH ABSCESS [None]
  - HAEMATOCRIT DECREASED [None]
  - HAEMOGLOBIN DECREASED [None]
  - MOUTH HAEMORRHAGE [None]
